FAERS Safety Report 25844976 (Version 1)
Quarter: 2025Q3

REPORT INFORMATION
  Report Type: Spontaneous
  Country: GB (occurrence: GB)
  Receive Date: 20250925
  Receipt Date: 20250925
  Transmission Date: 20251021
  Serious: Yes (Other)
  Sender: ORGANON
  Company Number: None

PATIENT

DRUGS (2)
  1. ALENDRONATE SODIUM [Suspect]
     Active Substance: ALENDRONATE SODIUM
     Indication: Osteoporosis prophylaxis
     Dosage: 70 MG WEEKLY
  2. LEVOTHYROXINE [Concomitant]
     Active Substance: LEVOTHYROXINE

REACTIONS (4)
  - Ocular hyperaemia [Recovering/Resolving]
  - Hypoaesthesia [Recovered/Resolved]
  - Influenza [Recovered/Resolved]
  - Pain in extremity [Recovered/Resolved]
